FAERS Safety Report 4357629-9 (Version None)
Quarter: 2004Q2

REPORT INFORMATION
  Report Type: 
  Country: None (occurrence: None)
  Receive Date: 20040510
  Receipt Date: 20040503
  Transmission Date: 20050107
  Serious: Yes (Death)
  Sender: FDA-Public Use
  Company Number: USA-2004-0014951

PATIENT
  Age: 35 Year
  Sex: Male
  Weight: 81.6 kg

DRUGS (5)
  1. MORPHINE SULFATE [Suspect]
  2. CITALOPRAM [Suspect]
  3. FLUCONAZOLE [Suspect]
  4. LIDOCAINE [Suspect]
  5. ATROPINE [Suspect]

REACTIONS (20)
  - ACCIDENT [None]
  - DISSEMINATED INTRAVASCULAR COAGULATION [None]
  - DRUG SCREEN POSITIVE [None]
  - EXCORIATION [None]
  - GASTRIC HAEMORRHAGE [None]
  - GASTROINTESTINAL NECROSIS [None]
  - HEPATIC CONGESTION [None]
  - HEPATIC NECROSIS [None]
  - HEPATIC RUPTURE [None]
  - HUMERUS FRACTURE [None]
  - HYPERAEMIA [None]
  - INJURY [None]
  - LACERATION [None]
  - LEG AMPUTATION [None]
  - LIMB TRAUMATIC AMPUTATION [None]
  - LUNG INJURY [None]
  - PULMONARY OEDEMA [None]
  - RIB FRACTURE [None]
  - SHOCK [None]
  - SPLENIC INJURY [None]
